FAERS Safety Report 8090893-1 (Version None)
Quarter: 2012Q1

REPORT INFORMATION
  Report Type: 
  Country: None (occurrence: None)
  Receive Date: 20120125
  Receipt Date: 20120111
  Transmission Date: 20120608
  Serious: Yes (Hospitalization, Other)
  Sender: FDA-Public Use
  Company Number: 2012MA000483

PATIENT
  Sex: Female
  Weight: 68.9467 kg

DRUGS (7)
  1. PRANDIN [Concomitant]
  2. NITROGLYCERIN [Concomitant]
  3. LOTREL [Concomitant]
  4. HYDROCHLOROTHIAZIDE [Concomitant]
  5. ASPIRIN [Concomitant]
  6. COREG [Concomitant]
  7. DIGOXIN [Suspect]
     Dosage: 0.25 MG;QD;PO
     Route: 048
     Dates: start: 20021010, end: 20100125

REACTIONS (22)
  - SINUS BRADYCARDIA [None]
  - ABDOMINAL PAIN [None]
  - CHEST DISCOMFORT [None]
  - SECONDARY HYPERTENSION [None]
  - VISUAL ACUITY REDUCED [None]
  - AORTIC VALVE CALCIFICATION [None]
  - BLOOD GLUCOSE INCREASED [None]
  - LEFT VENTRICULAR HYPERTROPHY [None]
  - CARDIAC FAILURE CONGESTIVE [None]
  - PROTEIN TOTAL DECREASED [None]
  - CYSTITIS [None]
  - BREAST PAIN [None]
  - CONDITION AGGRAVATED [None]
  - ESSENTIAL HYPERTENSION [None]
  - MITRAL VALVE CALCIFICATION [None]
  - PULMONARY HYPERTENSION [None]
  - RETROPERITONEAL LYMPHADENOPATHY [None]
  - CHEST PAIN [None]
  - TRICUSPID VALVE INCOMPETENCE [None]
  - ARRHYTHMIA [None]
  - BREAST MASS [None]
  - MITRAL VALVE INCOMPETENCE [None]
